FAERS Safety Report 9597010 (Version 3)
Quarter: 2013Q4

REPORT INFORMATION
  Report Type: Spontaneous
  Country: US (occurrence: US)
  Receive Date: 20131004
  Receipt Date: 20131022
  Transmission Date: 20140711
  Serious: Yes (Other)
  Sender: FDA-Public Use
  Company Number: US-009507513-1308USA013232

PATIENT
  Sex: Female

DRUGS (5)
  1. THERAPY UNSPECIFIED [Suspect]
     Dosage: 3 SHOTS A WEEK
     Dates: start: 20000101, end: 200007
  2. PEGASYS [Suspect]
     Indication: HEPATITIS C
     Dosage: 180 MICROGRAM, QW
     Route: 058
  3. RIBAPAK [Suspect]
     Indication: HEPATITIS C
     Dosage: 800 MG, AS DIRECTED
     Dates: start: 2013
  4. VICTRELIS [Suspect]
     Indication: HEPATITIS C
     Dosage: 200 MG, TID, AFTER 4 WEEK LEAD IN
     Route: 048
     Dates: start: 201308, end: 2013
  5. THERAPY UNSPECIFIED [Suspect]
     Indication: HEPATITIS C
     Dosage: 3 SHOTS A WEEK
     Dates: start: 2000, end: 2000

REACTIONS (10)
  - Swollen tongue [Unknown]
  - Stomatitis [Unknown]
  - Fatigue [Unknown]
  - Hepatitis C RNA increased [Unknown]
  - Therapeutic response decreased [Unknown]
  - Fatigue [Unknown]
  - Activities of daily living impaired [Unknown]
  - Insomnia [Unknown]
  - Eating disorder [Unknown]
  - Influenza [Unknown]
